FAERS Safety Report 16660850 (Version 1)
Quarter: 2019Q3

REPORT INFORMATION
  Report Type: Spontaneous
  Country: US (occurrence: US)
  Receive Date: 20190801
  Receipt Date: 20190801
  Transmission Date: 20191004
  Serious: Yes (Other)
  Sender: FDA-Public Use
  Company Number: None

PATIENT
  Age: 43 Year
  Sex: Female
  Weight: 70.65 kg

DRUGS (8)
  1. ZOFRAN [Concomitant]
     Active Substance: ONDANSETRON HYDROCHLORIDE
  2. CARBAMAZEPINE. [Concomitant]
     Active Substance: CARBAMAZEPINE
  3. SPRIX [Suspect]
     Active Substance: KETOROLAC TROMETHAMINE
     Indication: HEADACHE
     Dosage: ?          QUANTITY:5 SPRAY(S);OTHER ROUTE:NASAL SPRAY?
     Dates: start: 20190401, end: 20190412
  4. QUDEXY XR [Concomitant]
     Active Substance: TOPIRAMATE
  5. PANTOPRAZOLE [Concomitant]
     Active Substance: PANTOPRAZOLE
  6. TYLENOL [Concomitant]
     Active Substance: ACETAMINOPHEN
  7. NORTRIPTYLINE [Concomitant]
     Active Substance: NORTRIPTYLINE
  8. GABAPENTIN. [Concomitant]
     Active Substance: GABAPENTIN

REACTIONS (2)
  - Renal pain [None]
  - Epistaxis [None]

NARRATIVE: CASE EVENT DATE: 20190401
